FAERS Safety Report 5374112-2 (Version None)
Quarter: 2007Q2

REPORT INFORMATION
  Report Type: 
  Country: None (occurrence: None)
  Receive Date: 20070627
  Receipt Date: 20070613
  Transmission Date: 20071010
  Serious: Yes (Hospitalization)
  Sender: FDA-Public Use
  Company Number: S07-FRA-02359-01

PATIENT
  Age: 76 Year
  Sex: Female

DRUGS (4)
  1. ESCITALOPRAM [Suspect]
     Dates: end: 20060903
  2. ATENOLOL [Suspect]
     Dates: end: 20060911
  3. NOCTAMIDE (LORMETAZEPAM) [Suspect]
     Dosage: 2 MG QD PO
     Route: 048
     Dates: end: 20060904
  4. AMLODIPINE BESYLATE [Concomitant]

REACTIONS (6)
  - AMNESIA [None]
  - CONFUSIONAL STATE [None]
  - CONVULSION [None]
  - HYPONATRAEMIA [None]
  - LOSS OF CONSCIOUSNESS [None]
  - MALAISE [None]
